FAERS Safety Report 13561642 (Version 2)
Quarter: 2017Q2

REPORT INFORMATION
  Report Type: Report from Study
  Country: US (occurrence: US)
  Receive Date: 20170518
  Receipt Date: 20170613
  Transmission Date: 20170830
  Serious: Yes (Hospitalization)
  Sender: FDA-Public Use
  Company Number: US-ACTELION-A-US2017-152463

PATIENT
  Age: 83 Year
  Sex: Male
  Weight: 76.64 kg

DRUGS (5)
  1. OPSUMIT [Suspect]
     Active Substance: MACITENTAN
     Indication: PULMONARY ARTERIAL HYPERTENSION
     Dosage: 10 MG, QD
     Route: 048
     Dates: start: 20170330
  2. ADEMPAS [Concomitant]
     Active Substance: RIOCIGUAT
  3. NIFEDIPINE. [Concomitant]
     Active Substance: NIFEDIPINE
  4. XARELTO [Suspect]
     Active Substance: RIVAROXABAN
     Indication: PRODUCT USED FOR UNKNOWN INDICATION
     Route: 065
  5. UPTRAVI [Concomitant]
     Active Substance: SELEXIPAG
     Indication: PULMONARY ARTERIAL HYPERTENSION
     Dosage: 200 MCG, BID
     Route: 048

REACTIONS (9)
  - Fall [Unknown]
  - Haemorrhage [Unknown]
  - Oedema peripheral [Not Recovered/Not Resolved]
  - Oxygen saturation decreased [Unknown]
  - Dyspnoea [Unknown]
  - Respiratory distress [Unknown]
  - Malaise [Unknown]
  - Anticoagulation drug level above therapeutic [Unknown]
  - Anaemia [Unknown]
